FAERS Safety Report 13035219 (Version 2)
Quarter: 2017Q1

REPORT INFORMATION
  Report Type: Spontaneous
  Country: HR (occurrence: HR)
  Receive Date: 20161216
  Receipt Date: 20170113
  Transmission Date: 20170428
  Serious: Yes (Other)
  Sender: FDA-Public Use
  Company Number: HR-TEVA-719570ACC

PATIENT
  Sex: Female
  Weight: 59 kg

DRUGS (7)
  1. DECORTIN [Concomitant]
     Active Substance: PREDNISONE
     Indication: RHEUMATOID ARTHRITIS
     Dosage: 5 MILLIGRAM DAILY;
     Route: 048
     Dates: start: 201402
  2. SALAZOPYRIN EN [Concomitant]
     Active Substance: SULFASALAZINE
     Dosage: 3000 MILLIGRAM DAILY;
     Dates: start: 201406
  3. PEPTORAN [Concomitant]
     Active Substance: RANITIDINE HYDROCHLORIDE
     Dosage: MAX 2,AS NEEDED
  4. KORDOBIS [Suspect]
     Active Substance: BISOPROLOL FUMARATE
     Indication: HYPERTENSION
     Dosage: 2.5 MILLIGRAM DAILY;
     Route: 048
     Dates: start: 20160428, end: 20160502
  5. DICLO DUO KAPSULE 75 MG [Concomitant]
     Dosage: 1-2 CAPSULES
  6. FOLACIN [Concomitant]
     Active Substance: FOLIC ACID
     Dosage: 5 MILLIGRAM DAILY;
  7. LUPOCET [Concomitant]
     Dosage: 3000 MILLIGRAM DAILY;

REACTIONS (5)
  - Feeling abnormal [Recovered/Resolved]
  - Insomnia [Recovered/Resolved]
  - Hallucinations, mixed [Recovered/Resolved]
  - Nightmare [Recovered/Resolved]
  - Hypoaesthesia [Recovered/Resolved]

NARRATIVE: CASE EVENT DATE: 2016
